FAERS Safety Report 6157242-7 (Version None)
Quarter: 2009Q2

REPORT INFORMATION
  Report Type: 
  Country: None (occurrence: None)
  Receive Date: 20090416
  Receipt Date: 20090317
  Transmission Date: 20091009
  Serious: Yes (Other)
  Sender: FDA-Public Use
  Company Number: CA-PURDUE-CAN_2008_0000838

PATIENT
  Age: 41 Year
  Sex: Female

DRUGS (6)
  1. PROZAC                             /00724401/ [Concomitant]
     Indication: DRUG USE FOR UNKNOWN INDICATION
     Dosage: 20 MG, UNK
  2. MORPHINE SULFATE [Suspect]
     Indication: PAIN
     Dosage: 60 MG, BID
     Route: 048
     Dates: start: 20080721
  3. STATEX                             /00036302/ [Concomitant]
     Indication: PAIN
     Dosage: 5 MG, TID
     Dates: start: 20080101
  4. ZYTRAM XL 150 MG [Concomitant]
     Indication: PAIN
     Dosage: 150 MG, DAILY
     Dates: start: 20080801
  5. CESAMET [Concomitant]
     Indication: PAIN
     Dosage: 1 MG, BID
     Dates: start: 20080101
  6. SOFLAX                             /00061602/ [Concomitant]
     Indication: CONSTIPATION
     Dosage: UNK, BID
     Dates: start: 20071201

REACTIONS (9)
  - DRUG WITHDRAWAL SYNDROME [None]
  - GAIT DISTURBANCE [None]
  - LOSS OF CONSCIOUSNESS [None]
  - MALAISE [None]
  - OVERDOSE [None]
  - PAIN [None]
  - SPEECH DISORDER [None]
  - TREMOR [None]
  - VOMITING [None]
